FAERS Safety Report 23231696 (Version 1)
Quarter: 2023Q4

REPORT INFORMATION
  Report Type: Spontaneous
  Country: GB (occurrence: GB)
  Receive Date: 20231127
  Receipt Date: 20231127
  Transmission Date: 20240109
  Serious: Yes (Other)
  Sender: FDA-Public Use
  Company Number: None

PATIENT
  Age: 44 Year
  Sex: Female
  Weight: 65 kg

DRUGS (1)
  1. SUMATRIPTAN [Suspect]
     Active Substance: SUMATRIPTAN
     Indication: Migraine with aura
     Dosage: 50 MG
     Route: 065

REACTIONS (10)
  - Illness [Recovered/Resolved]
  - Disorientation [Recovered/Resolved]
  - Dry mouth [Recovered/Resolved]
  - Oral pain [Recovered/Resolved]
  - Headache [Recovered/Resolved]
  - Somnolence [Recovered/Resolved]
  - Visual brightness [Recovered/Resolved]
  - Coordination abnormal [Recovered/Resolved]
  - Feeling drunk [Recovered/Resolved]
  - Drug interaction [Unknown]

NARRATIVE: CASE EVENT DATE: 20231118
